FAERS Safety Report 14556928 (Version 1)
Quarter: 2018Q1

REPORT INFORMATION
  Report Type: Spontaneous
  Country: BR (occurrence: BR)
  Receive Date: 20180221
  Receipt Date: 20180221
  Transmission Date: 20180509
  Serious: Yes (Other)
  Sender: FDA-Public Use
  Company Number: BR-ROCHE-2071395

PATIENT
  Age: 49 Year
  Sex: Male

DRUGS (4)
  1. TEMODAL [Concomitant]
     Active Substance: TEMOZOLOMIDE
     Indication: GLIOBLASTOMA MULTIFORME
     Route: 048
     Dates: end: 201711
  2. IRINOTECAN [Concomitant]
     Active Substance: IRINOTECAN
     Indication: GLIOBLASTOMA MULTIFORME
     Route: 065
     Dates: start: 201711
  3. AVASTIN [Suspect]
     Active Substance: BEVACIZUMAB
     Indication: GLIOBLASTOMA MULTIFORME
     Route: 065
     Dates: start: 201612
  4. AVASTIN [Suspect]
     Active Substance: BEVACIZUMAB
     Route: 065
     Dates: start: 201612

REACTIONS (3)
  - Off label use [Unknown]
  - Intentional product use issue [Unknown]
  - Brain neoplasm [Not Recovered/Not Resolved]

NARRATIVE: CASE EVENT DATE: 20180131
